FAERS Safety Report 25999497 (Version 1)
Quarter: 2025Q4

REPORT INFORMATION
  Report Type: Spontaneous
  Country: EU (occurrence: EU)
  Receive Date: 20251105
  Receipt Date: 20251105
  Transmission Date: 20260117
  Serious: Yes (Hospitalization, Other)
  Sender: AUROBINDO
  Company Number: EU-AFSSAPS-GR2025001633

PATIENT
  Age: 71 Year
  Sex: Female
  Weight: 46 kg

DRUGS (6)
  1. LORMETAZEPAM [Suspect]
     Active Substance: LORMETAZEPAM
     Indication: Poisoning deliberate
     Dosage: NP
     Route: 048
     Dates: start: 20251001, end: 20251001
  2. CITALOPRAM [Suspect]
     Active Substance: CITALOPRAM
     Indication: Poisoning deliberate
     Dosage: NP
     Route: 048
     Dates: start: 20251001, end: 20251001
  3. ALPRAZOLAM [Suspect]
     Active Substance: ALPRAZOLAM
     Indication: Poisoning deliberate
     Dosage: NP
     Route: 048
     Dates: start: 20251001, end: 20251001
  4. DIAZEPAM [Suspect]
     Active Substance: DIAZEPAM
     Indication: Poisoning deliberate
     Dosage: NP
     Route: 048
     Dates: start: 20251001, end: 20251001
  5. PRAZEPAM [Suspect]
     Active Substance: PRAZEPAM
     Indication: Poisoning deliberate
     Dosage: NP
     Route: 048
     Dates: start: 20251001, end: 20251001
  6. OXAZEPAM [Suspect]
     Active Substance: OXAZEPAM
     Indication: Poisoning deliberate
     Dosage: NP
     Route: 048
     Dates: start: 20251001, end: 20251001

REACTIONS (3)
  - Poisoning deliberate [Recovered/Resolved]
  - Coma [Recovered/Resolved]
  - Electrocardiogram QT prolonged [Recovered/Resolved]

NARRATIVE: CASE EVENT DATE: 20251001
